FAERS Safety Report 9840564 (Version 3)
Quarter: 2014Q1

REPORT INFORMATION
  Report Type: Spontaneous
  Country: US (occurrence: US)
  Receive Date: 20140124
  Receipt Date: 20140219
  Transmission Date: 20141002
  Serious: No
  Sender: FDA-Public Use
  Company Number: US-PFIZER INC-2014019694

PATIENT
  Age: 66 Year
  Sex: Female
  Weight: 54.4 kg

DRUGS (1)
  1. ESTRING [Suspect]
     Indication: OESTROGEN REPLACEMENT THERAPY
     Dosage: UNK
     Route: 067
     Dates: start: 2013, end: 20140119

REACTIONS (3)
  - Vaginal odour [Unknown]
  - Vaginal discharge [Unknown]
  - Vaginal infection [Unknown]
